FAERS Safety Report 13511729 (Version 1)
Quarter: 2017Q2

REPORT INFORMATION
  Report Type: Report from Study
  Country: US (occurrence: US)
  Receive Date: 20170504
  Receipt Date: 20170504
  Transmission Date: 20170830
  Serious: No
  Sender: FDA-Public Use
  Company Number: PHEH2017US012331

PATIENT
  Age: 63 Year
  Sex: Female
  Weight: 54 kg

DRUGS (1)
  1. COSENTYX [Suspect]
     Active Substance: SECUKINUMAB
     Indication: PRODUCT USED FOR UNKNOWN INDICATION
     Dosage: 300 MG, QW
     Route: 030
     Dates: start: 20170201, end: 20170301

REACTIONS (8)
  - Dysphagia [Unknown]
  - Incorrect route of drug administration [Unknown]
  - Diarrhoea [Unknown]
  - Dyspepsia [Recovering/Resolving]
  - Eating disorder [Unknown]
  - Buccal mucosal roughening [Unknown]
  - Oral discomfort [Unknown]
  - Colitis [Unknown]

NARRATIVE: CASE EVENT DATE: 20170301
